FAERS Safety Report 10085989 (Version 1)
Quarter: 2014Q2

REPORT INFORMATION
  Report Type: Spontaneous
  Country: AT (occurrence: None)
  Receive Date: 20140416
  Receipt Date: 20140416
  Transmission Date: 20141212
  Serious: Yes (Life-Threatening, Hospitalization)
  Sender: FDA-Public Use
  Company Number: IMP_07564_2014

PATIENT
  Age: 73 Year
  Sex: Male

DRUGS (5)
  1. VALPROIC ACID (VALPROIC ACID) [Suspect]
     Indication: CONVULSION
     Dosage: DAY
  2. TOPIRAMATE (TOPIRAMATE) [Suspect]
     Indication: CONVULSION
     Dosage: DAY
  3. LEVETIRACETAM [Concomitant]
  4. PHENYTOIN [Concomitant]
  5. LACOSAMIDE [Concomitant]

REACTIONS (6)
  - Somnolence [None]
  - Stupor [None]
  - Dysphagia [None]
  - Pneumonia aspiration [None]
  - Hyperammonaemic encephalopathy [None]
  - Electroencephalogram abnormal [None]
